FAERS Safety Report 9247303 (Version 1)
Quarter: 2013Q2

REPORT INFORMATION
  Report Type: Spontaneous
  Country: BR (occurrence: BR)
  Receive Date: 20130423
  Receipt Date: 20130423
  Transmission Date: 20140414
  Serious: Yes (Other)
  Sender: FDA-Public Use
  Company Number: BR-AMGEN-BRASP2013027730

PATIENT
  Age: 68 Year
  Sex: Female
  Weight: 74 kg

DRUGS (4)
  1. ENBREL [Suspect]
     Indication: RHEUMATOID ARTHRITIS
     Dosage: 50 MG, 1X/WEEK
     Dates: start: 201112, end: 201211
  2. TRAMAL [Concomitant]
     Indication: PAIN
     Dosage: UNK
  3. METICORTEN [Concomitant]
     Indication: ARTHRITIS
     Dosage: UNK
  4. METHOTREXATE [Concomitant]
     Indication: ARTHRITIS
     Dosage: UNK, ONCE A WEEK
     Dates: end: 201211

REACTIONS (2)
  - Limb injury [Unknown]
  - Drug intolerance [Unknown]
